FAERS Safety Report 17816575 (Version 1)
Quarter: 2020Q2

REPORT INFORMATION
  Report Type: Spontaneous
  Country: US (occurrence: US)
  Receive Date: 20200522
  Receipt Date: 20200522
  Transmission Date: 20200714
  Serious: Yes (Hospitalization)
  Sender: FDA-Public Use
  Company Number: None

PATIENT
  Age: 43 Year
  Sex: Male
  Weight: 96.5 kg

DRUGS (3)
  1. FUROSEMIDE 40 MG IV [Concomitant]
     Dates: start: 20200518, end: 20200518
  2. NOREPINEPHRINE. [Concomitant]
     Active Substance: NOREPINEPHRINE
     Dates: start: 20200519, end: 20200521
  3. REMDESIVIR. [Suspect]
     Active Substance: REMDESIVIR
     Indication: COVID-19
     Route: 041
     Dates: start: 20200516, end: 20200519

REACTIONS (4)
  - Septic shock [None]
  - Blood creatinine increased [None]
  - Aspartate aminotransferase increased [None]
  - Renal impairment [None]

NARRATIVE: CASE EVENT DATE: 20200519
